FAERS Safety Report 6868503-8 (Version None)
Quarter: 2010Q3

REPORT INFORMATION
  Report Type: 
  Country: None (occurrence: None)
  Receive Date: 20100722
  Receipt Date: 20080611
  Transmission Date: 20110219
  Serious: No
  Sender: FDA-Public Use
  Company Number: US-PFIZER INC-2008047331

PATIENT
  Sex: Female
  Weight: 80 kg

DRUGS (2)
  1. CHANTIX [Suspect]
     Indication: SMOKING CESSATION THERAPY
     Dates: start: 20070601
  2. KLONOPIN [Concomitant]
     Indication: ANXIETY

REACTIONS (2)
  - INCORRECT DOSE ADMINISTERED [None]
  - TOBACCO USER [None]
